FAERS Safety Report 6210117-7 (Version None)
Quarter: 2009Q2

REPORT INFORMATION
  Report Type: 
  Country: None (occurrence: None)
  Receive Date: 20090601
  Receipt Date: 20090522
  Transmission Date: 20091009
  Serious: Yes (Hospitalization)
  Sender: FDA-Public Use
  Company Number: HU-BAYER-200921592GPV

PATIENT
  Sex: Male

DRUGS (4)
  1. DICLOFENAC SODIUM [Interacting]
     Indication: INTERVERTEBRAL DISC PROTRUSION
     Dosage: TOTAL DAILY DOSE: 150 MG
     Route: 065
     Dates: start: 20060501
  2. ACETYLSALICYLIC ACID SRT [Suspect]
     Indication: ANTIPLATELET THERAPY
     Route: 065
  3. CLOPIDOGREL [Concomitant]
     Indication: ANTIPLATELET THERAPY
     Route: 065
  4. MELOXICAM [Concomitant]
     Indication: INTERVERTEBRAL DISC PROTRUSION
     Dosage: TOTAL DAILY DOSE: 30 MG
     Route: 065
     Dates: start: 20060501

REACTIONS (3)
  - CARDIAC ENZYMES INCREASED [None]
  - MYOCARDIAL INFARCTION [None]
  - THROMBOSIS IN DEVICE [None]
